FAERS Safety Report 19860336 (Version 1)
Quarter: 2021Q3

REPORT INFORMATION
  Report Type: Spontaneous
  Country: US (occurrence: US)
  Receive Date: 20210921
  Receipt Date: 20210921
  Transmission Date: 20211014
  Serious: No
  Sender: FDA-Public Use
  Company Number: US-BAYER-2021-209345

PATIENT
  Sex: Female

DRUGS (1)
  1. MIRENA [Suspect]
     Active Substance: LEVONORGESTREL
     Dosage: 20 ?G, CONT
     Route: 015

REACTIONS (4)
  - Vaginal odour [Recovering/Resolving]
  - Abdominal distension [Recovering/Resolving]
  - Vaginal haemorrhage [Recovering/Resolving]
  - Skin abrasion [Recovering/Resolving]
